FAERS Safety Report 17277013 (Version 5)
Quarter: 2020Q4

REPORT INFORMATION
  Report Type: Spontaneous
  Country: US (occurrence: US)
  Receive Date: 20200116
  Receipt Date: 20201130
  Transmission Date: 20210113
  Serious: Yes (Other)
  Sender: FDA-Public Use
  Company Number: US-PFIZER INC-2020021330

PATIENT
  Age: 72 Year
  Sex: Female

DRUGS (1)
  1. XELJANZ [Suspect]
     Active Substance: TOFACITINIB CITRATE
     Indication: RHEUMATOID ARTHRITIS
     Dosage: 5 MG, DAILY
     Route: 048
     Dates: start: 2020

REACTIONS (6)
  - Pain in jaw [Unknown]
  - Mental impairment [Unknown]
  - Neck pain [Unknown]
  - Pain in extremity [Unknown]
  - Mobility decreased [Unknown]
  - Pain [Unknown]

NARRATIVE: CASE EVENT DATE: 2020
